FAERS Safety Report 4793844-8 (Version None)
Quarter: 2005Q4

REPORT INFORMATION
  Report Type: 
  Country: None (occurrence: None)
  Receive Date: 20051006
  Receipt Date: 20051006
  Transmission Date: 20060501
  Serious: No
  Sender: FDA-Public Use
  Company Number: None

PATIENT
  Age: 45 Year
  Weight: 101 kg

DRUGS (1)
  1. CLINDAMYCIN [Suspect]
     Indication: TOOTHACHE
     Dosage: 300 MG Q6H PO
     Route: 048

REACTIONS (3)
  - DYSPHAGIA [None]
  - RASH PRURITIC [None]
  - SWELLING FACE [None]
